FAERS Safety Report 15158479 (Version 2)
Quarter: 2018Q3

REPORT INFORMATION
  Report Type: Report from Study
  Country: PL (occurrence: PL)
  Receive Date: 20180718
  Receipt Date: 20180724
  Transmission Date: 20181010
  Serious: Yes (Other)
  Sender: FDA-Public Use
  Company Number: PL-PFIZER INC-2018272018

PATIENT

DRUGS (2)
  1. FENTANYL. [Interacting]
     Active Substance: FENTANYL
     Dosage: UNK
  2. SERTRALINE HCL [Suspect]
     Active Substance: SERTRALINE HYDROCHLORIDE
     Dosage: UNK

REACTIONS (3)
  - Respiratory depression [Unknown]
  - Dyspnoea [Unknown]
  - Drug interaction [Unknown]
